FAERS Safety Report 8225262-4 (Version None)
Quarter: 2012Q1

REPORT INFORMATION
  Report Type: 
  Country: None (occurrence: None)
  Receive Date: 20120321
  Receipt Date: 20120312
  Transmission Date: 20120608
  Serious: Yes (Hospitalization)
  Sender: FDA-Public Use
  Company Number: US-ASTRAZENECA-2011SE32252

PATIENT
  Age: 61 Year
  Sex: Female

DRUGS (12)
  1. CALCIUM CARBONATE [Concomitant]
     Dates: start: 20000101, end: 20020101
  2. FORTEO [Concomitant]
     Indication: OSTEOPOROSIS
     Route: 065
  3. NEXIUM [Suspect]
     Route: 048
     Dates: start: 20040101, end: 20100101
  4. NEXIUM [Suspect]
     Route: 065
     Dates: start: 20030101, end: 20090101
  5. VITAMIN D [Concomitant]
     Indication: OSTEOPOROSIS
  6. NEXIUM [Suspect]
     Indication: GASTROOESOPHAGEAL REFLUX DISEASE
     Route: 048
     Dates: start: 20040101, end: 20100101
  7. ACIPHEX [Concomitant]
     Indication: GASTROOESOPHAGEAL REFLUX DISEASE
     Dates: start: 20070401
  8. ROLAIDS [Concomitant]
     Dates: start: 20000101, end: 20020101
  9. NAPROXEN (ALEVE) [Concomitant]
  10. EVAMIST [Concomitant]
  11. NEXIUM [Suspect]
     Route: 065
     Dates: start: 20030101, end: 20090101
  12. DEPOESTRADOL [Concomitant]
     Dates: start: 19960101, end: 19990101

REACTIONS (6)
  - BONE LOSS [None]
  - OSTEOPOROSIS [None]
  - SPINAL COMPRESSION FRACTURE [None]
  - VITAMIN D DEFICIENCY [None]
  - BACK INJURY [None]
  - EMOTIONAL DISTRESS [None]
